FAERS Safety Report 14360782 (Version 1)
Quarter: 2018Q1

REPORT INFORMATION
  Report Type: Spontaneous
  Country: US (occurrence: US)
  Receive Date: 20180107
  Receipt Date: 20180107
  Transmission Date: 20180509
  Serious: No
  Sender: FDA-Public Use
  Company Number: US-TEVA-2017-US-840023

PATIENT
  Sex: Female

DRUGS (1)
  1. EQ 3 DAY MICONAZOLE TREATMENT [Suspect]
     Active Substance: MICONAZOLE
     Dates: start: 20171207, end: 20171211

REACTIONS (1)
  - Drug ineffective [Unknown]

NARRATIVE: CASE EVENT DATE: 20171218
